FAERS Safety Report 13390338 (Version 1)
Quarter: 2017Q1

REPORT INFORMATION
  Report Type: Spontaneous
  Country: US (occurrence: US)
  Receive Date: 20170330
  Receipt Date: 20170330
  Transmission Date: 20170429
  Serious: Yes (Hospitalization)
  Sender: FDA-Public Use
  Company Number: None

PATIENT
  Age: 78 Year
  Sex: Male

DRUGS (2)
  1. LEVOFLOXACIN. [Suspect]
     Active Substance: LEVOFLOXACIN
     Indication: DELIRIUM
     Route: 042
     Dates: start: 20170316, end: 20170316
  2. LEVOFLOXACIN. [Suspect]
     Active Substance: LEVOFLOXACIN
     Indication: ENCEPHALOPATHY
     Route: 042
     Dates: start: 20170316, end: 20170316

REACTIONS (2)
  - Agitation [None]
  - Confusional state [None]

NARRATIVE: CASE EVENT DATE: 20170323
